FAERS Safety Report 6634163-4 (Version None)
Quarter: 2010Q1

REPORT INFORMATION
  Report Type: 
  Country: None (occurrence: None)
  Receive Date: 20100315
  Receipt Date: 20100303
  Transmission Date: 20100710
  Serious: Yes (Hospitalization, Other)
  Sender: FDA-Public Use
  Company Number: US-ELI_LILLY_AND_COMPANY-US201003002377

PATIENT
  Age: 50 Year
  Sex: Female

DRUGS (3)
  1. CYMBALTA [Suspect]
     Indication: ANXIETY
     Dosage: 60 MG, UNK
     Dates: start: 20080301, end: 20081101
  2. CYMBALTA [Suspect]
     Dosage: 60 MG, 2/D
     Dates: start: 20081101, end: 20100201
  3. CYMBALTA [Suspect]
     Dosage: 120 MG, QOD
     Dates: start: 20100201, end: 20100201

REACTIONS (11)
  - ANXIETY [None]
  - CRYING [None]
  - DEPRESSION [None]
  - DRUG WITHDRAWAL SYNDROME [None]
  - FEELING ABNORMAL [None]
  - HEADACHE [None]
  - LOSS OF CONSCIOUSNESS [None]
  - PAIN [None]
  - PARAESTHESIA [None]
  - PYREXIA [None]
  - SUICIDE ATTEMPT [None]
